FAERS Safety Report 5646579-3 (Version None)
Quarter: 2008Q1

REPORT INFORMATION
  Report Type: 
  Country: None (occurrence: None)
  Receive Date: 20080131
  Receipt Date: 20071213
  Transmission Date: 20080703
  Serious: Yes (Other)
  Sender: FDA-Public Use
  Company Number: 163-21880-07111508

PATIENT
  Age: 51 Year
  Sex: Female

DRUGS (3)
  1. REVLIMID [Suspect]
     Indication: MULTIPLE MYELOMA
     Dosage: 25 MG, DAILY FOR 21 DAYS, ORAL ; 25 MG, DAILY FOR 21 DAYS, ORAL ; 15 MG, DAILY FOR 21 DAYS, ORAL
     Route: 048
     Dates: end: 20071101
  2. REVLIMID [Suspect]
     Indication: MULTIPLE MYELOMA
     Dosage: 25 MG, DAILY FOR 21 DAYS, ORAL ; 25 MG, DAILY FOR 21 DAYS, ORAL ; 15 MG, DAILY FOR 21 DAYS, ORAL
     Route: 048
     Dates: start: 20070919
  3. REVLIMID [Suspect]
     Indication: MULTIPLE MYELOMA
     Dosage: 25 MG, DAILY FOR 21 DAYS, ORAL ; 25 MG, DAILY FOR 21 DAYS, ORAL ; 15 MG, DAILY FOR 21 DAYS, ORAL
     Route: 048
     Dates: start: 20071121

REACTIONS (2)
  - THROMBOSIS [None]
  - WHITE BLOOD CELL COUNT DECREASED [None]
